FAERS Safety Report 19800121 (Version 1)
Quarter: 2021Q3

REPORT INFORMATION
  Report Type: Spontaneous
  Country: US (occurrence: US)
  Receive Date: 20210908
  Receipt Date: 20210908
  Transmission Date: 20211014
  Serious: No
  Sender: FDA-Public Use
  Company Number: US-ASTRAZENECA-2021A685567

PATIENT
  Sex: Female
  Weight: 72.6 kg

DRUGS (1)
  1. FASENRA [Suspect]
     Active Substance: BENRALIZUMAB
     Indication: ASTHMA
     Route: 058

REACTIONS (5)
  - Rash [Unknown]
  - Therapeutic product effect incomplete [Unknown]
  - Nocturnal dyspnoea [Unknown]
  - Asthma [Unknown]
  - Acne [Recovered/Resolved]
